FAERS Safety Report 14161866 (Version 1)
Quarter: 2017Q4

REPORT INFORMATION
  Report Type: Spontaneous
  Country: GB (occurrence: GB)
  Receive Date: 20171106
  Receipt Date: 20171106
  Transmission Date: 20180321
  Serious: Yes (Other)
  Sender: FDA-Public Use
  Company Number: GB-TEVA-820057ACC

PATIENT
  Age: 58 Year
  Sex: Male
  Weight: 93 kg

DRUGS (5)
  1. LACRI-LUBE [Concomitant]
     Dosage: 1 DOSAGE FORMS DAILY; TO BE APPLIED TO THE AFFECTED EYE(S) AT NIGHT
     Route: 050
     Dates: start: 20150107
  2. ATORVASTATIN [Suspect]
     Active Substance: ATORVASTATIN
     Route: 065
     Dates: start: 20161017
  3. CARBOMER [Concomitant]
     Active Substance: CARBOMER
     Dosage: USE AS DIRECTED
     Dates: start: 20150507, end: 20170904
  4. CLINITAS [Concomitant]
     Dosage: USE AS DIRECTED
     Dates: start: 20170904
  5. DEXAMETHASONE. [Concomitant]
     Active Substance: DEXAMETHASONE
     Dosage: AS PER SPECIALIST ADVISE
     Dates: start: 20170724, end: 20170803

REACTIONS (1)
  - Erectile dysfunction [Recovered/Resolved]

NARRATIVE: CASE EVENT DATE: 20171011
